FAERS Safety Report 5941211-3 (Version None)
Quarter: 2008Q4

REPORT INFORMATION
  Report Type: 
  Country: None (occurrence: None)
  Receive Date: 20081104
  Receipt Date: 20081023
  Transmission Date: 20090506
  Serious: Yes (Life-Threatening, Hospitalization, Other)
  Sender: FDA-Public Use
  Company Number: AU-PFIZER INC-2008076162

PATIENT
  Sex: Female
  Weight: 60 kg

DRUGS (5)
  1. ZELDOX (CAPSULES) [Suspect]
     Indication: MAJOR DEPRESSION
     Route: 048
     Dates: start: 20080603, end: 20080610
  2. ZELDOX (CAPSULES) [Suspect]
     Indication: AGITATED DEPRESSION
  3. PROTHIADEN [Suspect]
     Indication: AGITATED DEPRESSION
     Route: 048
     Dates: start: 20050101, end: 20080612
  4. NEULACTIL [Concomitant]
     Route: 048
     Dates: end: 20080612
  5. VALIUM [Concomitant]

REACTIONS (5)
  - ACUTE MYOCARDIAL INFARCTION [None]
  - CARDIOGENIC SHOCK [None]
  - CORONARY ARTERY OCCLUSION [None]
  - DIARRHOEA [None]
  - SEROTONIN SYNDROME [None]
